FAERS Safety Report 9585025 (Version 1)
Quarter: 2013Q4

REPORT INFORMATION
  Report Type: Spontaneous
  Country: US (occurrence: US)
  Receive Date: 20131002
  Receipt Date: 20131002
  Transmission Date: 20140711
  Serious: No
  Sender: FDA-Public Use
  Company Number: US-AMGEN-USASP2013061496

PATIENT
  Age: 59 Year
  Sex: Female
  Weight: 174 kg

DRUGS (9)
  1. ENBREL [Suspect]
     Indication: PRODUCT USED FOR UNKNOWN INDICATION
     Dosage: 50 MG, QWK
     Route: 058
  2. METHOTREXATE [Concomitant]
     Dosage: 2.5 MG, UNK
  3. CITALOPRAM [Concomitant]
     Dosage: 40 MG, UNK
  4. OMEPRAZOLE [Concomitant]
     Dosage: 20 MG, UNK
  5. SIMVASTATIN [Concomitant]
     Dosage: 40 MG, UNK
  6. HYDROCHLOROTHIAZID [Concomitant]
     Dosage: 25 MG, UNK
  7. ASA [Concomitant]
     Dosage: 81 MG, UNK
  8. ZETIA [Concomitant]
     Dosage: 10 MG, UNK
  9. FOLIC ACID [Concomitant]
     Dosage: 20 MG, UNK

REACTIONS (2)
  - Fatigue [Unknown]
  - Injection site erythema [Unknown]
